FAERS Safety Report 6384229-1 (Version None)
Quarter: 2009Q4

REPORT INFORMATION
  Report Type: 
  Country: None (occurrence: None)
  Receive Date: 20091001
  Receipt Date: 20090928
  Transmission Date: 20100525
  Serious: Yes (Hospitalization)
  Sender: FDA-Public Use
  Company Number: B0595353A

PATIENT
  Sex: Male

DRUGS (22)
  1. TOPOTECAN [Suspect]
     Dosage: 3MG PER DAY
     Dates: start: 20090803
  2. FLECAINIDE ACETATE [Concomitant]
     Indication: ARRHYTHMIA
  3. VERACAPS [Concomitant]
     Indication: HYPERTENSION
  4. PRESSIN [Concomitant]
     Indication: HYPERTENSION
  5. ALODORM [Concomitant]
     Indication: SEDATION
     Dates: start: 20081101
  6. HERBAL SUPPLEMENT [Concomitant]
     Dates: start: 20081001
  7. ONDANSETRON [Concomitant]
     Route: 042
     Dates: start: 20090803
  8. ONDANSETRON [Concomitant]
     Route: 048
     Dates: start: 20090806
  9. DEXAMETHASONE 4MG TAB [Concomitant]
     Route: 042
     Dates: start: 20090803
  10. DEXAMETHASONE 4MG TAB [Concomitant]
     Route: 048
     Dates: start: 20090806
  11. MAXOLON [Concomitant]
     Indication: CONSTIPATION
     Dates: start: 20090806
  12. PRAMIN [Concomitant]
     Indication: NAUSEA
     Dates: start: 20090811
  13. NEULASTA [Concomitant]
     Dates: start: 20090808
  14. CIPROFLOXACIN HYDROCHLORIDE [Concomitant]
     Dates: start: 20090810
  15. TIMENTIN [Concomitant]
     Dates: start: 20090811
  16. GENTAMICIN [Concomitant]
     Dates: start: 20090811
  17. NEXIUM [Concomitant]
     Indication: DYSPEPSIA
     Dates: start: 20090811
  18. NULYTELY [Concomitant]
     Indication: CONSTIPATION
     Dates: start: 20090812
  19. COLOXYL [Concomitant]
     Dates: start: 20090812
  20. SENNA [Concomitant]
     Dates: start: 20090812
  21. HEPARIN [Concomitant]
     Dates: start: 20090812, end: 20090814
  22. PARACETAMOL [Concomitant]
     Indication: ANALGESIC THERAPY
     Dates: start: 20090812

REACTIONS (4)
  - FALL [None]
  - FATIGUE [None]
  - HYPONATRAEMIA [None]
  - SYNCOPE [None]
